FAERS Safety Report 14920291 (Version 1)
Quarter: 2018Q2

REPORT INFORMATION
  Report Type: Report from Study
  Country: BR (occurrence: BR)
  Receive Date: 20180521
  Receipt Date: 20180521
  Transmission Date: 20180711
  Serious: Yes (Hospitalization)
  Sender: FDA-Public Use
  Company Number: PHHY2018BR004677

PATIENT
  Age: 66 Year
  Sex: Female
  Weight: 68 kg

DRUGS (3)
  1. EXELON PATCH [Suspect]
     Active Substance: RIVASTIGMINE
     Indication: RESTLESSNESS
  2. EXELON PATCH [Suspect]
     Active Substance: RIVASTIGMINE
     Indication: AGGRESSION
     Dosage: 13.3 MG, QD PATCH 15 (CM2)
     Route: 062
  3. EXELON PATCH [Suspect]
     Active Substance: RIVASTIGMINE
     Indication: AGITATION

REACTIONS (9)
  - Hypophagia [Unknown]
  - Agitation [Unknown]
  - Aggression [Unknown]
  - Weight fluctuation [Unknown]
  - Product use in unapproved indication [Unknown]
  - Drooling [Unknown]
  - Somnolence [Unknown]
  - Fear of eating [Unknown]
  - Overdose [Recovered/Resolved]

NARRATIVE: CASE EVENT DATE: 201710
